FAERS Safety Report 9498911 (Version 1)
Quarter: 2013Q3

REPORT INFORMATION
  Report Type: Report from Study
  Country: ZA (occurrence: ZA)
  Receive Date: 20130904
  Receipt Date: 20130904
  Transmission Date: 20140515
  Serious: Yes (Death)
  Sender: FDA-Public Use
  Company Number: ZA-ROCHE-1270364

PATIENT
  Sex: Female

DRUGS (4)
  1. MIRCERA [Suspect]
     Indication: NEPHROGENIC ANAEMIA
     Route: 058
     Dates: start: 201108
  2. MIRCERA [Suspect]
     Dosage: 03/SEP/2013 STOPED CURRENT DOSE
     Route: 058
     Dates: start: 20121202
  3. MIRCERA [Suspect]
     Dosage: 03/SEP/2013 STOPED CURRENT DOSE
     Route: 058
     Dates: start: 201206
  4. VENOFER [Concomitant]
     Indication: NEPHROGENIC ANAEMIA
     Route: 042

REACTIONS (1)
  - Death [Fatal]
